FAERS Safety Report 8115762-X (Version None)
Quarter: 2012Q1

REPORT INFORMATION
  Report Type: 
  Country: None (occurrence: None)
  Receive Date: 20120206
  Receipt Date: 20120126
  Transmission Date: 20120608
  Serious: Yes (Hospitalization)
  Sender: FDA-Public Use
  Company Number: US-ROCHE-1036937

PATIENT
  Sex: Male

DRUGS (10)
  1. ALTACE [Concomitant]
     Dates: start: 20070101
  2. LUCENTIS [Suspect]
     Dosage: FREQUENCY: PRN
     Route: 050
     Dates: start: 20080317
  3. AMARYL [Concomitant]
     Dates: start: 20070101
  4. TOPROL-XL [Concomitant]
     Dates: start: 20080101
  5. CYMBALTA [Concomitant]
     Dates: start: 20060101
  6. HUMALOG [Concomitant]
     Dates: start: 20070101
  7. METFORMIN HCL [Concomitant]
     Dates: start: 20040101
  8. COUMADIN [Concomitant]
     Dates: start: 20080101
  9. RANIBIZUMAB [Suspect]
     Indication: DIABETIC RETINAL OEDEMA
     Dosage: FREQUENCY: PRN
     Route: 050
     Dates: start: 20100330
  10. LANTUS [Concomitant]
     Dates: start: 20060101

REACTIONS (1)
  - PNEUMONIA [None]
